FAERS Safety Report 10022463 (Version 4)
Quarter: 2014Q2

REPORT INFORMATION
  Report Type: Spontaneous
  Country: US (occurrence: US)
  Receive Date: 20140319
  Receipt Date: 20140613
  Transmission Date: 20141212
  Serious: Yes (Death, Hospitalization, Other)
  Sender: FDA-Public Use
  Company Number: US-MERCK-1403USA008970

PATIENT
  Sex: Female
  Weight: 88.89 kg

DRUGS (5)
  1. JANUVIA [Suspect]
     Indication: TYPE 2 DIABETES MELLITUS
     Dosage: 100 MG, QD
     Route: 048
     Dates: start: 20070808, end: 20090511
  2. JANUVIA [Suspect]
     Dosage: 50 MG, BID
     Route: 048
     Dates: start: 20080513, end: 201212
  3. JANUVIA [Suspect]
     Dosage: 50 MG, QD
     Route: 048
     Dates: start: 20090513
  4. JANUMET [Suspect]
     Indication: TYPE 2 DIABETES MELLITUS
     Dosage: 100 MG, QD
     Route: 048
     Dates: start: 20080429, end: 20080512
  5. SITAGLIPTIN PHOSPHATE [Suspect]

REACTIONS (36)
  - Pancreatic carcinoma metastatic [Fatal]
  - Precancerous cells present [Unknown]
  - Dehydration [Unknown]
  - Post procedural bile leak [Unknown]
  - Renal failure acute [Recovered/Resolved]
  - Vision blurred [Recovered/Resolved]
  - Diabetic neuropathy [Unknown]
  - Ulcer [Unknown]
  - Gallbladder disorder [Unknown]
  - Electrocardiogram T wave inversion [Unknown]
  - Breast disorder [Unknown]
  - Cataract [Unknown]
  - Cataract operation [Unknown]
  - Large intestine polyp [Unknown]
  - Large intestinal polypectomy [Unknown]
  - Diverticulum [Unknown]
  - Mononeuritis [Unknown]
  - Endocrine hypertension [Unknown]
  - Dysphagia [Unknown]
  - Pulmonary mass [Unknown]
  - Hypomagnesaemia [Recovered/Resolved]
  - Pyrexia [Unknown]
  - Biliary dilatation [Unknown]
  - Cholelithiasis [Unknown]
  - Gastritis [Unknown]
  - Anxiety [Unknown]
  - Hypotension [Unknown]
  - Gastrooesophageal reflux disease [Unknown]
  - Nausea [Unknown]
  - Abdominal pain upper [Unknown]
  - Abdominal pain upper [Unknown]
  - Diarrhoea [Unknown]
  - Nausea [Unknown]
  - Drug hypersensitivity [Unknown]
  - Pain in extremity [Unknown]
  - Constipation [Unknown]
